FAERS Safety Report 12881868 (Version 1)
Quarter: 2016Q4

REPORT INFORMATION
  Report Type: Report from Study
  Country: None (occurrence: GB)
  Receive Date: 20161025
  Receipt Date: 20161025
  Transmission Date: 20170207
  Serious: Yes (Hospitalization)
  Sender: FDA-Public Use
  Company Number: GB-ABBVIE-16K-167-1759685-00

PATIENT
  Age: 38 Year
  Sex: Male
  Weight: 84 kg

DRUGS (2)
  1. HUMIRA [Suspect]
     Active Substance: ADALIMUMAB
     Indication: PSORIASIS
     Route: 058
     Dates: start: 20130415
  2. PREDNISOLONE. [Concomitant]
     Active Substance: PREDNISOLONE
     Indication: PRODUCT USED FOR UNKNOWN INDICATION
     Dates: start: 20150527

REACTIONS (3)
  - Fatty liver alcoholic [Recovered/Resolved]
  - Diarrhoea haemorrhagic [Recovered/Resolved]
  - Steatohepatitis [Recovered/Resolved]

NARRATIVE: CASE EVENT DATE: 20150527
